FAERS Safety Report 21818102 (Version 1)
Quarter: 2023Q1

REPORT INFORMATION
  Report Type: Spontaneous
  Country: US (occurrence: US)
  Receive Date: 20230104
  Receipt Date: 20230104
  Transmission Date: 20230417
  Serious: Yes (Other)
  Sender: FDA-Public Use
  Company Number: US-COOPERSURGICAL, INC.-US-2022CPS001618

PATIENT
  Age: 33 Year
  Sex: Female
  Weight: 63.946 kg

DRUGS (2)
  1. PARAGARD T 380A [Suspect]
     Active Substance: COPPER
     Indication: Contraception
     Dosage: UNK
     Route: 015
     Dates: start: 20170525, end: 20220531
  2. AMITRIPTYLINE [Concomitant]
     Active Substance: AMITRIPTYLINE
     Indication: Migraine prophylaxis
     Route: 065

REACTIONS (7)
  - Complication of device removal [Recovered/Resolved]
  - Procedural pain [Recovered/Resolved]
  - Device issue [Recovered/Resolved]
  - Menstrual disorder [Not Recovered/Not Resolved]
  - Dysmenorrhoea [Recovered/Resolved]
  - Heavy menstrual bleeding [Recovered/Resolved]
  - Intermenstrual bleeding [Recovered/Resolved]

NARRATIVE: CASE EVENT DATE: 20210501
